FAERS Safety Report 5494409-5 (Version None)
Quarter: 2007Q4

REPORT INFORMATION
  Report Type: 
  Country: None (occurrence: None)
  Receive Date: 20071022
  Receipt Date: 20071016
  Transmission Date: 20080405
  Serious: Yes (Hospitalization)
  Sender: FDA-Public Use
  Company Number: 2007SP020909

PATIENT
  Sex: Male
  Weight: 66 kg

DRUGS (1)
  1. PEG-INTRON [Suspect]
     Indication: MALIGNANT MELANOMA
     Dosage: 50 MCG

REACTIONS (3)
  - LUNG NEOPLASM [None]
  - METASTASES TO LUNG [None]
  - TUBERCULOSIS [None]
